FAERS Safety Report 14713126 (Version 3)
Quarter: 2018Q2

REPORT INFORMATION
  Report Type: Spontaneous
  Country: US (occurrence: US)
  Receive Date: 20180404
  Receipt Date: 20180430
  Transmission Date: 20180711
  Serious: No
  Sender: FDA-Public Use
  Company Number: US-PFIZER INC-2018135162

PATIENT
  Age: 77 Year
  Sex: Female
  Weight: 61.22 kg

DRUGS (9)
  1. LYRICA [Suspect]
     Active Substance: PREGABALIN
     Indication: OSTEOARTHRITIS
  2. LYRICA [Suspect]
     Active Substance: PREGABALIN
     Indication: PAIN
  3. AMLODIPINE [Concomitant]
     Active Substance: AMLODIPINE BESYLATE
     Indication: BLOOD PRESSURE ABNORMAL
     Dosage: 1 DF (TABLET), DAILY (EVERYDAY)
     Route: 048
  4. DENZAPINE [Concomitant]
     Active Substance: CLOZAPINE
     Indication: BLOOD PRESSURE ABNORMAL
     Dosage: 1 DF (TABLET), DAILY (EVERYDAY)
     Route: 048
  5. CLONAZEPAM. [Concomitant]
     Active Substance: CLONAZEPAM
     Indication: SLEEP DISORDER
     Dosage: 1 MG, 1X/DAY [EVERY NIGHT]
     Route: 048
  6. ATORVASTATIN [Concomitant]
     Active Substance: ATORVASTATIN
     Indication: BLOOD CHOLESTEROL ABNORMAL
     Dosage: 40 MG, 1X/DAY
     Route: 048
  7. LYRICA [Suspect]
     Active Substance: PREGABALIN
     Indication: BONE DISORDER
     Dosage: 50 MG, 2X/DAY
     Route: 048
     Dates: start: 2016, end: 2016
  8. LEVOTHYROXINE. [Concomitant]
     Active Substance: LEVOTHYROXINE
     Dosage: 188 OR 100 MCG, 1X/DAY
     Route: 048
  9. ATENOLOL/CHLORTHALIDONE [Concomitant]
     Active Substance: ATENOLOL\CHLORTHALIDONE
     Indication: BLOOD PRESSURE ABNORMAL
     Dosage: 100 MG, DAILY, (EVERYDAY)
     Route: 048

REACTIONS (9)
  - Nausea [Unknown]
  - Confusional state [Recovered/Resolved]
  - Hypersensitivity [Recovered/Resolved]
  - Peripheral swelling [Recovered/Resolved]
  - Skin disorder [Recovered/Resolved]
  - Euphoric mood [Unknown]
  - Drug effect decreased [Unknown]
  - Dizziness [Recovered/Resolved]
  - Impaired driving ability [Unknown]

NARRATIVE: CASE EVENT DATE: 2016
